FAERS Safety Report 16698024 (Version 1)
Quarter: 2019Q3

REPORT INFORMATION
  Report Type: Report from Study
  Country: CA (occurrence: CA)
  Receive Date: 20190813
  Receipt Date: 20190813
  Transmission Date: 20191004
  Serious: Yes (Hospitalization, Other)
  Sender: FDA-Public Use
  Company Number: CA-BRISTOL-MYERS SQUIBB COMPANY-BMS-2018-013720

PATIENT
  Sex: Male

DRUGS (1)
  1. ABATACEPT [Suspect]
     Active Substance: ABATACEPT
     Indication: RHEUMATOID ARTHRITIS
     Dosage: 750 MG, Q4WK
     Route: 042
     Dates: start: 20180119

REACTIONS (9)
  - Sepsis [Unknown]
  - Wound infection [Not Recovered/Not Resolved]
  - Malaise [Unknown]
  - Nasopharyngitis [Unknown]
  - Pericardial effusion [Unknown]
  - Product dose omission [Unknown]
  - Arthralgia [Unknown]
  - Bursa disorder [Not Recovered/Not Resolved]
  - Rheumatoid arthritis [Unknown]
